FAERS Safety Report 7516287-2 (Version None)
Quarter: 2011Q2

REPORT INFORMATION
  Report Type: 
  Country: None (occurrence: None)
  Receive Date: 20110601
  Receipt Date: 20110519
  Transmission Date: 20111010
  Serious: Yes (Other)
  Sender: FDA-Public Use
  Company Number: PHHY2010DE57747

PATIENT
  Age: 55 Year
  Sex: Male

DRUGS (5)
  1. RASILEZ [Suspect]
     Indication: HYPERTENSION
     Dosage: 300 MG, BID
     Route: 048
     Dates: start: 20090527
  2. EXFORGE HCT [Suspect]
     Indication: HYPERTENSION
     Dosage: 160/ 10/ 12.5 MG, ONCE DAILY
     Route: 048
     Dates: start: 20100527
  3. AMLODIPINE [Suspect]
     Dosage: 10 MG, PRN
     Route: 048
  4. DELIX PLUS [Concomitant]
     Dosage: UNK
     Route: 048
     Dates: end: 20100526
  5. RASILEZ [Suspect]
     Dosage: 150 MG, BID
     Route: 048
     Dates: start: 20100330

REACTIONS (3)
  - WEIGHT INCREASED [None]
  - HERPES ZOSTER [None]
  - OEDEMA PERIPHERAL [None]
